FAERS Safety Report 11245562 (Version 2)
Quarter: 2015Q3

REPORT INFORMATION
  Report Type: Report from Study
  Country: US (occurrence: US)
  Receive Date: 20150707
  Receipt Date: 20150828
  Transmission Date: 20151125
  Serious: Yes (Hospitalization)
  Sender: FDA-Public Use
  Company Number: US-ABBVIE-15P-163-1421882-00

PATIENT
  Age: 37 Year
  Sex: Male

DRUGS (2)
  1. VIEKIRA PAK [Suspect]
     Active Substance: DASABUVIR\OMBITASVIR\PARITAPREVIR\RITONAVIR
     Indication: HEPATITIS C
     Route: 048
     Dates: start: 20150423
  2. MODERIBA [Suspect]
     Active Substance: RIBAVIRIN
     Indication: HEPATITIS C
     Route: 048
     Dates: start: 20150423

REACTIONS (12)
  - Drug dose omission [Recovered/Resolved]
  - Platelet count decreased [Recovered/Resolved]
  - Ammonia increased [Unknown]
  - Peripheral swelling [Recovering/Resolving]
  - Confusional state [Recovering/Resolving]
  - Depression [Unknown]
  - Drug dose omission [Recovered/Resolved]
  - Confusional state [Recovered/Resolved]
  - Gastric dilatation [Recovering/Resolving]
  - Dysarthria [Recovering/Resolving]
  - Drug dose omission [Recovered/Resolved]
  - Nausea [Unknown]

NARRATIVE: CASE EVENT DATE: 201506
